FAERS Safety Report 6102573-X (Version None)
Quarter: 2009Q1

REPORT INFORMATION
  Report Type: 
  Country: None (occurrence: None)
  Receive Date: 20090304
  Receipt Date: 20080903
  Transmission Date: 20090719
  Serious: No
  Sender: FDA-Public Use
  Company Number: A0745666A

PATIENT
  Age: 76 Year
  Sex: Female

DRUGS (5)
  1. REQUIP [Suspect]
     Indication: RESTLESS LEGS SYNDROME
     Dosage: 1MG PER DAY
     Route: 048
     Dates: start: 20080818, end: 20080831
  2. REQUIP XL [Suspect]
     Indication: RESTLESS LEGS SYNDROME
     Dosage: 2MG PER DAY
     Route: 048
     Dates: start: 20080901
  3. BENAZEPRIL HYDROCHLORIDE AND HYDROCHLOROTHIAZIDE [Concomitant]
  4. AMLODIPINE [Concomitant]
  5. CRESTOR [Concomitant]

REACTIONS (1)
  - FLUID RETENTION [None]
